FAERS Safety Report 8342904-3 (Version None)
Quarter: 2012Q2

REPORT INFORMATION
  Report Type: 
  Country: None (occurrence: None)
  Receive Date: 20120508
  Receipt Date: 20120504
  Transmission Date: 20120825
  Serious: No
  Sender: FDA-Public Use
  Company Number: US-PFIZER INC-2009171276

PATIENT
  Sex: Female
  Weight: 58.957 kg

DRUGS (12)
  1. LYRICA [Suspect]
     Indication: NEUROPATHY PERIPHERAL
     Dosage: 50 MG, 2X/DAY
     Route: 048
  2. COSOPT [Concomitant]
     Dosage: UNK
     Route: 047
  3. XALATAN [Suspect]
     Indication: GLAUCOMA
     Dosage: UNK
  4. CELEXA [Concomitant]
     Indication: ANXIETY
     Dosage: UNK
  5. LYRICA [Suspect]
     Indication: HYPOAESTHESIA
     Dosage: 25 MG, 2X/DAY
     Route: 048
  6. LYRICA [Suspect]
     Dosage: 25 MG, 1X/DAY
     Route: 048
  7. LYRICA [Suspect]
     Dosage: 75 MG, 1X/DAY
     Route: 048
  8. TENORMIN [Concomitant]
     Indication: HYPERTENSION
     Dosage: UNK
  9. RESTASIS [Concomitant]
     Dosage: UNK
     Route: 047
  10. LYRICA [Suspect]
     Indication: BURNING SENSATION
     Dosage: 75 MG, 3X/DAY
     Route: 048
  11. LIPITOR [Suspect]
     Indication: BLOOD CHOLESTEROL INCREASED
     Dosage: 20 MG, 1X/DAY
     Route: 048
     Dates: start: 20080101
  12. XALATAN [Suspect]
     Dosage: ONE DROP IN BOTH EYES, 1X/DAY
     Route: 047

REACTIONS (3)
  - HERPES ZOSTER [None]
  - BLOOD CHOLESTEROL INCREASED [None]
  - EYE IRRITATION [None]
